FAERS Safety Report 11936112 (Version 1)
Quarter: 2016Q1

REPORT INFORMATION
  Report Type: Spontaneous
  Country: US (occurrence: US)
  Receive Date: 20160121
  Receipt Date: 20160121
  Transmission Date: 20160526
  Serious: No
  Sender: FDA-Public Use
  Company Number: US-AMGEN-USASP2015125801

PATIENT
  Age: 72 Year
  Sex: Male
  Weight: 99.2 kg

DRUGS (2)
  1. DEXAMETHASONE. [Concomitant]
     Active Substance: DEXAMETHASONE
     Indication: PLASMA CELL MYELOMA
     Dosage: 8 MG, UNK
     Route: 042
     Dates: start: 20150915
  2. KYPROLIS [Suspect]
     Active Substance: CARFILZOMIB
     Indication: PLASMA CELL MYELOMA
     Dosage: 42MG/M2 (91MG)
     Route: 042
     Dates: start: 20150915

REACTIONS (7)
  - Injection site irritation [Unknown]
  - Injection site swelling [Recovered/Resolved]
  - Erythema [Unknown]
  - Injection site pain [Unknown]
  - Needle issue [Unknown]
  - Injection site extravasation [Recovered/Resolved]
  - Tenderness [Recovered/Resolved]

NARRATIVE: CASE EVENT DATE: 2015
